FAERS Safety Report 8859391 (Version 7)
Quarter: 2015Q4

REPORT INFORMATION
  Report Type: Spontaneous
  Country: US (occurrence: US)
  Receive Date: 20121024
  Receipt Date: 20151026
  Transmission Date: 20160305
  Serious: Yes (Hospitalization, Disabling, Other)
  Sender: FDA-Public Use
  Company Number: US-009507513-1210USA007083

PATIENT
  Sex: Female

DRUGS (8)
  1. ALENDRONATE SODIUM. [Suspect]
     Active Substance: ALENDRONATE SODIUM
     Indication: OSTEOPENIA
     Dosage: 70 MG, QW
     Route: 048
     Dates: start: 2008, end: 20100904
  2. ALENDRONATE SODIUM. [Suspect]
     Active Substance: ALENDRONATE SODIUM
     Indication: PRODUCT USED FOR UNKNOWN INDICATION
     Dosage: 70 MG, UNKNOWN
     Route: 048
     Dates: start: 20110119
  3. FOSAMAX [Suspect]
     Active Substance: ALENDRONATE SODIUM
     Dosage: 70 MG, QW
     Route: 048
     Dates: start: 20091207
  4. FOSAMAX [Suspect]
     Active Substance: ALENDRONATE SODIUM
     Indication: OSTEOPOROSIS
     Dosage: 70 MG, QW
     Route: 048
     Dates: start: 20090824
  5. LISINOPRIL. [Concomitant]
     Active Substance: LISINOPRIL
     Indication: HYPERTENSION
     Dosage: UNK
     Route: 048
     Dates: start: 199903
  6. FOSAMAX [Suspect]
     Active Substance: ALENDRONATE SODIUM
     Dosage: 70 MG, QW
     Route: 048
     Dates: start: 20100322
  7. ALENDRONATE SODIUM. [Suspect]
     Active Substance: ALENDRONATE SODIUM
     Indication: OSTEOPOROSIS
  8. FOSAMAX [Suspect]
     Active Substance: ALENDRONATE SODIUM
     Indication: OSTEOPENIA
     Dosage: 70 MG, QW
     Route: 048
     Dates: start: 20050111, end: 20080614

REACTIONS (21)
  - Low turnover osteopathy [Unknown]
  - Blood cholesterol increased [Not Recovered/Not Resolved]
  - Surgery [Unknown]
  - Tooth extraction [Unknown]
  - Osteoarthritis [Unknown]
  - Surgery [Unknown]
  - Hyperlipidaemia [Unknown]
  - Back pain [Unknown]
  - Fall [Unknown]
  - Vitamin D deficiency [Unknown]
  - Femur fracture [Not Recovered/Not Resolved]
  - Osteoporosis [Unknown]
  - Gallbladder operation [Unknown]
  - Pain [Not Recovered/Not Resolved]
  - Gastrooesophageal reflux disease [Not Recovered/Not Resolved]
  - Device failure [Unknown]
  - Spinal laminectomy [Unknown]
  - Stress urinary incontinence [Unknown]
  - Hip arthroplasty [Unknown]
  - Tooth extraction [Unknown]
  - Bone disorder [Unknown]

NARRATIVE: CASE EVENT DATE: 20051018
